FAERS Safety Report 17067219 (Version 1)
Quarter: 2019Q4

REPORT INFORMATION
  Report Type: Spontaneous
  Country: GB (occurrence: GB)
  Receive Date: 20191122
  Receipt Date: 20191122
  Transmission Date: 20200122
  Serious: Yes (Hospitalization)
  Sender: FDA-Public Use
  Company Number: GB-PURDUE-GBR-2019-0072981

PATIENT
  Age: 83 Year
  Sex: Male

DRUGS (11)
  1. COCODAMOL [Concomitant]
     Active Substance: ACETAMINOPHEN\CODEINE PHOSPHATE
     Dosage: 8MG/500MG ONE OR TWO TO BE TAKEN, FOUR TIMES A DAY
  2. SALINE                             /00075401/ [Concomitant]
     Active Substance: SODIUM CHLORIDE
     Dosage: 20 ML, AS NECESSARY
  3. SALBUTAMOL [Concomitant]
     Active Substance: ALBUTEROL
     Dosage: 1 DF, AS NECESSARY (2.5MG/2.5ML FOUR TIMES A DAY)
     Route: 055
  4. FENBID [Concomitant]
     Active Substance: IBUPROFEN
     Dosage: APPLY UP TO FOUR TIMES A DAY (FORTE)
  5. SODIUM CHLORIDE. [Concomitant]
     Active Substance: SODIUM CHLORIDE
  6. THEOPHYLLINE [Suspect]
     Active Substance: THEOPHYLLINE ANHYDROUS
     Indication: PRODUCT USED FOR UNKNOWN INDICATION
     Dosage: UNK
     Route: 065
  7. VENTOLIN [Concomitant]
     Active Substance: ALBUTEROL SULFATE
     Dosage: 200 MCG, PRN [AS NECESSARY (PUFFS)]
  8. IBUPROFEN. [Concomitant]
     Active Substance: IBUPROFEN
  9. OMEPRAZOLE. [Concomitant]
     Active Substance: OMEPRAZOLE
     Dosage: 20 MG, DAILY
  10. UNIPHYLLIN CONTINUS [Concomitant]
     Active Substance: THEOPHYLLINE ANHYDROUS
     Dosage: 400 MG, DAILY
  11. PARACETAMOL [Concomitant]
     Active Substance: ACETAMINOPHEN
     Dosage: ONE EVERY 4-6 HOURS, UP TO FOUR TIMES A DAY

REACTIONS (2)
  - Metabolic disorder [Unknown]
  - Hypercalcaemia [Unknown]
